FAERS Safety Report 10357157 (Version 1)
Quarter: 2014Q3

REPORT INFORMATION
  Report Type: Spontaneous
  Country: ES (occurrence: GB)
  Receive Date: 20140801
  Receipt Date: 20140801
  Transmission Date: 20150326
  Serious: Yes (Other)
  Sender: FDA-Public Use
  Company Number: GB-FRI-1000069507

PATIENT
  Age: 70 Year
  Sex: Male
  Weight: 50 kg

DRUGS (26)
  1. NYSTATIN. [Concomitant]
     Active Substance: NYSTATIN
     Dates: start: 20140513, end: 20140520
  2. SALBUTAMOL [Concomitant]
     Active Substance: ALBUTEROL
     Dates: start: 20140407, end: 20140505
  3. DOMPERIDONE [Concomitant]
     Active Substance: DOMPERIDONE
     Dates: start: 20140407, end: 20140505
  4. RANITIDINE [Concomitant]
     Active Substance: RANITIDINE\RANITIDINE HYDROCHLORIDE
     Dates: start: 20140318, end: 20140505
  5. ASPIRIN. [Concomitant]
     Active Substance: ASPIRIN
     Dates: start: 20140407, end: 20140505
  6. ATORVASTATIN [Concomitant]
     Active Substance: ATORVASTATIN
     Dates: start: 20140219, end: 20140602
  7. DOCUSATE SODIUM. [Concomitant]
     Active Substance: DOCUSATE SODIUM
     Dates: start: 20140407, end: 20140606
  8. NYSTATIN. [Concomitant]
     Active Substance: NYSTATIN
     Dates: start: 20140613, end: 20140620
  9. SALBUTAMOL [Concomitant]
     Active Substance: ALBUTEROL
     Dates: start: 20140609, end: 20140707
  10. BECLOMETASONE [Concomitant]
     Active Substance: BECLOMETHASONE DIPROPIONATE
     Dates: start: 20140407, end: 20140514
  11. BECLOMETASONE [Concomitant]
     Active Substance: BECLOMETHASONE DIPROPIONATE
     Dates: start: 20140609, end: 20140707
  12. CARBOCISTEINE [Concomitant]
     Active Substance: CARBOCYSTEINE
     Dates: start: 20140704
  13. NYSTAN [Concomitant]
     Active Substance: NYSTATIN
     Dates: start: 20140519, end: 20140603
  14. OMEPRAZOLE. [Concomitant]
     Active Substance: OMEPRAZOLE
     Dates: start: 20140609, end: 20140707
  15. TIOTROPIUM [Concomitant]
     Active Substance: TIOTROPIUM
     Dates: start: 20140609
  16. ACLIDINIUM [Suspect]
     Active Substance: ACLIDINIUM BROMIDE
     Dates: start: 20140704, end: 20140708
  17. ASPIRIN. [Concomitant]
     Active Substance: ASPIRIN
     Dates: start: 20140609, end: 20140707
  18. DOMPERIDONE [Concomitant]
     Active Substance: DOMPERIDONE
     Dates: start: 20140609, end: 20140707
  19. LORATADINE. [Concomitant]
     Active Substance: LORATADINE
     Dates: start: 20140613
  20. SYMBICORT [Concomitant]
     Active Substance: BUDESONIDE\FORMOTEROL FUMARATE DIHYDRATE
     Dates: start: 20140407, end: 20140505
  21. OMEPRAZOLE. [Concomitant]
     Active Substance: OMEPRAZOLE
     Dates: start: 20140407, end: 20140505
  22. CARBOCISTEINE [Concomitant]
     Active Substance: CARBOCYSTEINE
     Dates: start: 20140407, end: 20140505
  23. OLIVE OIL [Concomitant]
     Active Substance: OLIVE OIL
     Dates: start: 20140407, end: 20140505
  24. SYMBICORT [Concomitant]
     Active Substance: BUDESONIDE\FORMOTEROL FUMARATE DIHYDRATE
     Dates: start: 20140609, end: 20140707
  25. TIOTROPIUM [Concomitant]
     Active Substance: TIOTROPIUM
     Dates: start: 20140407, end: 20140606
  26. NYSTAN [Concomitant]
     Active Substance: NYSTATIN
     Dates: start: 20140609, end: 20140624

REACTIONS (2)
  - Dyspnoea [Recovered/Resolved]
  - Flushing [Recovered/Resolved]

NARRATIVE: CASE EVENT DATE: 20140705
